FAERS Safety Report 4488718-6 (Version None)
Quarter: 2004Q4

REPORT INFORMATION
  Report Type: 
  Country: None (occurrence: None)
  Receive Date: 20041025
  Receipt Date: 20041011
  Transmission Date: 20050328
  Serious: Yes (Hospitalization, Other)
  Sender: FDA-Public Use
  Company Number: 2004077256

PATIENT
  Age: 50 Year
  Sex: Male

DRUGS (5)
  1. PHENYTOIN [Suspect]
     Indication: FRONTAL LOBE EPILEPSY
  2. LAMOTRIGINE [Suspect]
     Indication: FRONTAL LOBE EPILEPSY
  3. OXCARBAZEPINE (OXCARBAZEPINE) [Suspect]
     Indication: FRONTAL LOBE EPILEPSY
  4. VALPROATE SODIUM [Suspect]
     Indication: FRONTAL LOBE EPILEPSY
  5. PHENOBARBITAL TAB [Suspect]
     Indication: FRONTAL LOBE EPILEPSY

REACTIONS (11)
  - ABASIA [None]
  - ASTHENIA [None]
  - EATING DISORDER [None]
  - FALL [None]
  - KYPHOSIS [None]
  - MOBILITY DECREASED [None]
  - MYOPATHY [None]
  - OSTEOPOROTIC FRACTURE [None]
  - SPINAL COMPRESSION FRACTURE [None]
  - SPINAL CORD COMPRESSION [None]
  - VISUAL DISTURBANCE [None]
